FAERS Safety Report 17412647 (Version 1)
Quarter: 2020Q1

REPORT INFORMATION
  Report Type: Spontaneous
  Country: US (occurrence: US)
  Receive Date: 20200212
  Receipt Date: 20200212
  Transmission Date: 20200409
  Serious: No
  Sender: FDA-Public Use
  Company Number: None

PATIENT
  Age: 78 Year
  Sex: Female
  Weight: 53.1 kg

DRUGS (11)
  1. ASPIRIN. [Concomitant]
     Active Substance: ASPIRIN
  2. ANASTRAZOLE [Concomitant]
     Active Substance: ANASTROZOLE
  3. RANEXA [Concomitant]
     Active Substance: RANOLAZINE
  4. LASIX [Concomitant]
     Active Substance: FUROSEMIDE
  5. ENTRESTRO [Concomitant]
  6. ATORVASTATIN [Concomitant]
     Active Substance: ATORVASTATIN
  7. VITAMIN B -12 [Concomitant]
  8. CALTRATE 600+D PLUS [Concomitant]
  9. IBRANCE [Suspect]
     Active Substance: PALBOCICLIB
     Indication: BREAST CANCER FEMALE
  10. MELOXICAM. [Concomitant]
     Active Substance: MELOXICAM
  11. TIZANIDINE. [Concomitant]
     Active Substance: TIZANIDINE

REACTIONS (1)
  - White blood cell count decreased [None]

NARRATIVE: CASE EVENT DATE: 20200212
